FAERS Safety Report 23331898 (Version 1)
Quarter: 2023Q4

REPORT INFORMATION
  Report Type: Spontaneous
  Country: US (occurrence: US)
  Receive Date: 20231222
  Receipt Date: 20231222
  Transmission Date: 20240109
  Serious: Yes (Death)
  Sender: FDA-Public Use
  Company Number: US-009507513-2312USA007752

PATIENT
  Age: 72 Year
  Sex: Male

DRUGS (1)
  1. STROMECTOL [Suspect]
     Active Substance: IVERMECTIN
     Route: 048

REACTIONS (2)
  - COVID-19 [Fatal]
  - Intentional product misuse [Fatal]
